FAERS Safety Report 17683167 (Version 3)
Quarter: 2020Q2

REPORT INFORMATION
  Report Type: Spontaneous
  Country: US (occurrence: US)
  Receive Date: 20200420
  Receipt Date: 20200625
  Transmission Date: 20200714
  Serious: No
  Sender: FDA-Public Use
  Company Number: US-ASTRAZENECA-2020SE48396

PATIENT
  Sex: Female

DRUGS (1)
  1. SYMBICORT [Suspect]
     Active Substance: BUDESONIDE\FORMOTEROL FUMARATE DIHYDRATE
     Dosage: 80MCG/4.5MCG TWO TIMES A DAY
     Route: 055
     Dates: start: 202002

REACTIONS (6)
  - Intentional device misuse [Not Recovered/Not Resolved]
  - Product dose omission [Not Recovered/Not Resolved]
  - Device malfunction [Not Recovered/Not Resolved]
  - Device issue [Unknown]
  - Viral infection [Unknown]
  - Wrong technique in product usage process [Unknown]
